FAERS Safety Report 5490359-9 (Version None)
Quarter: 2007Q4

REPORT INFORMATION
  Report Type: 
  Country: None (occurrence: None)
  Receive Date: 20071015
  Receipt Date: 20061006
  Transmission Date: 20080405
  Serious: Yes (Other)
  Sender: FDA-Public Use
  Company Number: PHEH2006US12602

PATIENT
  Age: 87 Year
  Sex: Female

DRUGS (1)
  1. MIACALCIN [Suspect]
     Indication: OSTEOPOROSIS
     Dosage: 200 IU, QD, INTRANASAL
     Route: 050
     Dates: start: 20020501

REACTIONS (2)
  - DEAFNESS UNILATERAL [None]
  - RHINORRHOEA [None]
